FAERS Safety Report 5724844-9 (Version None)
Quarter: 2008Q2

REPORT INFORMATION
  Report Type: 
  Country: None (occurrence: None)
  Receive Date: 20080501
  Receipt Date: 20080417
  Transmission Date: 20081010
  Serious: Yes (Other)
  Sender: FDA-Public Use
  Company Number: CA-BAYER-200711956GDS

PATIENT
  Age: 47 Year
  Sex: Female

DRUGS (2)
  1. ASPIRIN [Suspect]
     Indication: DRUG USE FOR UNKNOWN INDICATION
     Route: 065
     Dates: start: 20051220
  2. BICARBONATE [Suspect]
     Indication: DRUG USE FOR UNKNOWN INDICATION
     Route: 042

REACTIONS (5)
  - DRUG LEVEL INCREASED [None]
  - HYPERVENTILATION [None]
  - METABOLIC ACIDOSIS [None]
  - THERAPEUTIC AGENT TOXICITY [None]
  - VOMITING [None]
